APPROVED DRUG PRODUCT: FLUOXETINE HYDROCHLORIDE
Active Ingredient: FLUOXETINE HYDROCHLORIDE
Strength: EQ 40MG BASE
Dosage Form/Route: CAPSULE;ORAL
Application: A076990 | Product #001
Applicant: SUN PHARMACEUTICAL INDUSTRIES LTD
Approved: Dec 13, 2004 | RLD: No | RS: No | Type: DISCN